FAERS Safety Report 9414985 (Version 2)
Quarter: 2013Q3

REPORT INFORMATION
  Report Type: Report from Study
  Country: US (occurrence: US)
  Receive Date: 20130723
  Receipt Date: 20130816
  Transmission Date: 20140515
  Serious: Yes (Hospitalization)
  Sender: FDA-Public Use
  Company Number: US-ABBOTT-13P-163-1120412-00

PATIENT
  Age: 24 Year
  Sex: Female

DRUGS (3)
  1. HUMIRA [Suspect]
     Indication: CROHN^S DISEASE
     Dates: start: 201204, end: 201208
  2. HUMIRA [Suspect]
  3. NOVARING [Concomitant]
     Indication: CONTRACEPTION

REACTIONS (9)
  - Inflammation [Unknown]
  - Abdominal pain upper [Unknown]
  - Vomiting [Unknown]
  - Temporomandibular joint syndrome [Unknown]
  - Dyspepsia [Unknown]
  - Injection site haemorrhage [Not Recovered/Not Resolved]
  - Contusion [Not Recovered/Not Resolved]
  - Dermatitis allergic [Unknown]
  - Rash [Unknown]
